FAERS Safety Report 6134059-0 (Version None)
Quarter: 2009Q1

REPORT INFORMATION
  Report Type: 
  Country: None (occurrence: None)
  Receive Date: 20090217
  Receipt Date: 20080219
  Transmission Date: 20090719
  Serious: No
  Sender: FDA-Public Use
  Company Number: AEUSA200700279

PATIENT
  Age: 42 Year
  Sex: Male
  Weight: 85.7298 kg

DRUGS (10)
  1. PROLASTIN [Suspect]
     Indication: ALPHA-1 ANTI-TRYPSIN DEFICIENCY
     Dosage: 2617.5 MG; 1X; IV
     Route: 042
     Dates: start: 20071204, end: 20071204
  2. PRILOSEC [Concomitant]
  3. METHOCARBAMOL [Concomitant]
  4. NAPROXEN [Concomitant]
  5. METOPROLOL [Concomitant]
  6. DOXEPIN HCL [Concomitant]
  7. SPIRIVA [Concomitant]
  8. AMITRIPTYLINE HCL [Concomitant]
  9. PROVENTIL [Concomitant]
  10. ALBUTEROL [Concomitant]

REACTIONS (9)
  - CHEST DISCOMFORT [None]
  - DYSPNOEA [None]
  - ERYTHEMA [None]
  - FEELING ABNORMAL [None]
  - FEELING OF BODY TEMPERATURE CHANGE [None]
  - HEADACHE [None]
  - NERVOUSNESS [None]
  - PAINFUL RESPIRATION [None]
  - SKIN BURNING SENSATION [None]
